FAERS Safety Report 9901715 (Version 1)
Quarter: 2014Q1

REPORT INFORMATION
  Report Type: Spontaneous
  Country: US (occurrence: US)
  Receive Date: 20140217
  Receipt Date: 20140217
  Transmission Date: 20141002
  Serious: Yes (Death, Other)
  Sender: FDA-Public Use
  Company Number: PHHY2014US014563

PATIENT
  Age: 57 Year
  Sex: Male

DRUGS (4)
  1. 5-FLUOROURACIL [Suspect]
     Indication: HEPATOCELLULAR CARCINOMA
     Dosage: 370 MG/M2, UNK
     Route: 042
     Dates: start: 20081215
  2. LEUCOVORIN CALCIUM [Suspect]
     Dosage: 500 MG/M2, UNK
     Route: 042
     Dates: start: 20081215
  3. MORPHINE [Concomitant]
     Dosage: 40 MG, BID
  4. OXYCODONE [Concomitant]
     Dosage: 5 MG, Q6H PRN

REACTIONS (3)
  - Hepatocellular carcinoma [Fatal]
  - Portal vein thrombosis [Unknown]
  - Fatigue [Unknown]
